FAERS Safety Report 7233327-9 (Version None)
Quarter: 2011Q1

REPORT INFORMATION
  Report Type: 
  Country: None (occurrence: None)
  Receive Date: 20110119
  Receipt Date: 20110113
  Transmission Date: 20110831
  Serious: Yes (Death)
  Sender: FDA-Public Use
  Company Number: ID-ROCHE-749114

PATIENT
  Age: 21 Year
  Sex: Female
  Weight: 50 kg

DRUGS (5)
  1. CEFTRIAXONE SODIUM [Suspect]
     Dosage: DRUG NAME ^CEFTRIAXONE^
     Route: 065
     Dates: start: 20090923, end: 20090924
  2. METHYLPREDNISOLONE ACETATE [Concomitant]
     Dates: start: 20090123, end: 20090124
  3. OSELTAMIVIR [Suspect]
     Indication: AVIAN INFLUENZA
     Route: 065
     Dates: start: 20090123, end: 20090124
  4. LEVOFLOXACIN [Concomitant]
     Dosage: FREQUENCY: QD
     Dates: start: 20090123, end: 20090124
  5. ONDANSETRON [Concomitant]
     Dates: start: 20090123, end: 20090124

REACTIONS (3)
  - RESPIRATORY FAILURE [None]
  - SEPSIS [None]
  - SEPTIC SHOCK [None]
